FAERS Safety Report 8825833 (Version 1)
Quarter: 2012Q4

REPORT INFORMATION
  Report Type: 
  Country: US (occurrence: US)
  Receive Date: 20121004
  Receipt Date: 20121004
  Transmission Date: 20130627
  Serious: Yes (Hospitalization, Other)
  Sender: FDA-Public Use
  Company Number: PHHY2012US085133

PATIENT
  Age: 49 Year
  Sex: Male

DRUGS (3)
  1. SERTRALINE [Suspect]
     Dosage: 100 mg per day
  2. DOXEPIN [Suspect]
     Dosage: 25 mg, at bedtime
  3. ZOLINZA [Suspect]
     Indication: MYCOSIS FUNGOIDES
     Dosage: 400 mg, UNK
     Route: 048

REACTIONS (8)
  - Haematemesis [Unknown]
  - Haematochezia [Unknown]
  - Syncope [Unknown]
  - Torsade de pointes [Recovered/Resolved]
  - Electrocardiogram abnormal [Recovered/Resolved]
  - Electrocardiogram QT prolonged [Recovered/Resolved]
  - Electrocardiogram T wave inversion [Recovered/Resolved]
  - Hypokalaemia [Recovered/Resolved]
